FAERS Safety Report 26119044 (Version 1)
Quarter: 2025Q4

REPORT INFORMATION
  Report Type: Spontaneous
  Country: US (occurrence: US)
  Receive Date: 20251204
  Receipt Date: 20251204
  Transmission Date: 20260117
  Serious: No
  Sender: GLAXOSMITHKLINE
  Company Number: US-MMM-5PN49YEH

PATIENT
  Sex: Female

DRUGS (1)
  1. VENTOLIN [Suspect]
     Active Substance: ALBUTEROL SULFATE
     Indication: Product used for unknown indication
     Dosage: VENTOLIN HFA DC INH AER 18G 200ACTN US/T

REACTIONS (3)
  - Fall [Unknown]
  - Disorientation [Unknown]
  - Wrong technique in product usage process [Unknown]
